FAERS Safety Report 13004947 (Version 2)
Quarter: 2017Q1

REPORT INFORMATION
  Report Type: Spontaneous
  Country: DE (occurrence: DE)
  Receive Date: 20161207
  Receipt Date: 20170112
  Transmission Date: 20170428
  Serious: Yes (Life-Threatening, Other)
  Sender: FDA-Public Use
  Company Number: PHHY2016DE165534

PATIENT
  Sex: Female
  Weight: 47 kg

DRUGS (4)
  1. ADENURIC [Concomitant]
     Active Substance: FEBUXOSTAT
     Indication: PRODUCT USED FOR UNKNOWN INDICATION
     Dosage: 120 MG, QD
     Route: 048
     Dates: start: 2008, end: 20160715
  2. HYDROXYUREA. [Concomitant]
     Active Substance: HYDROXYUREA
     Indication: MYELOPROLIFERATIVE NEOPLASM
     Dosage: 500 MG, QD
     Route: 048
     Dates: start: 2008, end: 20160718
  3. TASIGNA [Suspect]
     Active Substance: NILOTINIB
     Indication: CHRONIC MYELOID LEUKAEMIA
     Dosage: 600 MG, QD
     Route: 048
     Dates: start: 20160715, end: 20160901
  4. TAMOXIFEN [Concomitant]
     Active Substance: TAMOXIFEN
     Indication: BREAST CANCER
     Dosage: 20 MG, QD
     Route: 048
     Dates: start: 2014

REACTIONS (7)
  - Neutropenia [Unknown]
  - Pancytopenia [Unknown]
  - Aplastic anaemia [Not Recovered/Not Resolved]
  - Haemorrhage [Unknown]
  - Anaemia [Unknown]
  - Thrombocytopenia [Unknown]
  - Leukopenia [Unknown]

NARRATIVE: CASE EVENT DATE: 20160901
